FAERS Safety Report 17339752 (Version 1)
Quarter: 2020Q1

REPORT INFORMATION
  Report Type: Spontaneous
  Country: PT (occurrence: PT)
  Receive Date: 20200129
  Receipt Date: 20200129
  Transmission Date: 20200409
  Serious: Yes (Other)
  Sender: FDA-Public Use
  Company Number: PT-PFIZER INC-2020036098

PATIENT
  Age: 38 Year
  Sex: Female

DRUGS (3)
  1. MEDROL [Suspect]
     Active Substance: METHYLPREDNISOLONE
     Indication: COLITIS ULCERATIVE
     Dosage: 40 MG, UNK
     Route: 048
     Dates: start: 20191030, end: 20191212
  2. MESALAZINE [Concomitant]
     Active Substance: MESALAMINE
     Dosage: UNK
     Route: 048
     Dates: start: 20181115
  3. MESALAZINE [Concomitant]
     Active Substance: MESALAMINE
     Dosage: UNK
     Route: 054

REACTIONS (6)
  - Anxiety [Unknown]
  - Weight increased [Unknown]
  - Agitation [Unknown]
  - Palpitations [Unknown]
  - Cushing^s syndrome [Unknown]
  - Hypertrichosis [Unknown]

NARRATIVE: CASE EVENT DATE: 20191128
